FAERS Safety Report 8142756-0 (Version None)
Quarter: 2012Q1

REPORT INFORMATION
  Report Type: 
  Country: None (occurrence: None)
  Receive Date: 20120216
  Receipt Date: 20120206
  Transmission Date: 20120608
  Serious: Yes (Other)
  Sender: FDA-Public Use
  Company Number: AU-ROCHE-1039215

PATIENT
  Sex: Female

DRUGS (4)
  1. FISH OIL [Concomitant]
  2. FLUOXETINE HCL [Concomitant]
  3. ACTEMRA [Suspect]
     Indication: RHEUMATOID ARTHRITIS
  4. MULTI-VITAMIN [Concomitant]

REACTIONS (8)
  - FEELING HOT [None]
  - FEELING ABNORMAL [None]
  - EYE SWELLING [None]
  - SPEECH DISORDER [None]
  - BLOOD PRESSURE INCREASED [None]
  - ANXIETY [None]
  - PALLOR [None]
  - FATIGUE [None]
